FAERS Safety Report 23563839 (Version 1)
Quarter: 2024Q1

REPORT INFORMATION
  Report Type: Spontaneous
  Country: DE (occurrence: DE)
  Receive Date: 20240226
  Receipt Date: 20240226
  Transmission Date: 20240410
  Serious: Yes (Life-Threatening)
  Sender: FDA-Public Use
  Company Number: DE-009507513-2312DEU003555

PATIENT
  Age: 47 Year
  Sex: Female
  Weight: 81 kg

DRUGS (5)
  1. CARBOPLATIN [Suspect]
     Active Substance: CARBOPLATIN
     Indication: Triple negative breast cancer
     Dosage: 12 X PAC/CARBO WEEKLY (QW) FROM 01AUG-2023 TO 17OCT2023
     Route: 065
     Dates: start: 20230801, end: 20231017
  2. CYCLOPHOSPHAMIDE [Suspect]
     Active Substance: CYCLOPHOSPHAMIDE
     Indication: Triple negative breast cancer
     Dosage: 4 X EC Q 21 FROM 05JUN2023
     Route: 065
     Dates: start: 20230605
  3. EPIRUBICIN [Suspect]
     Active Substance: EPIRUBICIN
     Indication: Triple negative breast cancer
     Dosage: 4 X EC Q 21 FROM 05JUN2023
     Route: 065
     Dates: start: 20230605
  4. KEYTRUDA [Suspect]
     Active Substance: PEMBROLIZUMAB
     Indication: Triple negative breast cancer
     Dosage: 200 MILLIGRAM, Q3W
     Route: 042
     Dates: start: 20230614
  5. PACLITAXEL [Suspect]
     Active Substance: PACLITAXEL
     Indication: Triple negative breast cancer
     Dosage: 12 X PAC/CARBO WEEKLY (QW) FROM 01AUG-2023 TO 17OCT2023
     Route: 065
     Dates: start: 20230801, end: 20231017

REACTIONS (1)
  - Pancreatic disorder [Recovered/Resolved with Sequelae]

NARRATIVE: CASE EVENT DATE: 20230101
